FAERS Safety Report 19476023 (Version 1)
Quarter: 2021Q2

REPORT INFORMATION
  Report Type: Report from Study
  Country: CO (occurrence: CO)
  Receive Date: 20210630
  Receipt Date: 20210630
  Transmission Date: 20210717
  Serious: Yes (Other)
  Sender: FDA-Public Use
  Company Number: NVSC2021CO121712

PATIENT
  Age: 63 Year
  Sex: Male
  Weight: 50 kg

DRUGS (2)
  1. MEKINIST [Suspect]
     Active Substance: TRAMETINIB DIMETHYL SULFOXIDE
     Indication: METASTATIC MALIGNANT MELANOMA
     Dosage: 2 MG, QD
     Route: 048
     Dates: start: 202012
  2. TAFINLAR [Suspect]
     Active Substance: DABRAFENIB MESYLATE
     Indication: METASTATIC MALIGNANT MELANOMA
     Dosage: 150 MG, Q12H, CAPSULE
     Route: 048
     Dates: start: 202012

REACTIONS (14)
  - Abdominal neoplasm [Unknown]
  - Insomnia [Unknown]
  - Nausea [Not Recovered/Not Resolved]
  - Metastatic malignant melanoma [Unknown]
  - Decreased appetite [Unknown]
  - Abdominal pain [Unknown]
  - Metastases to kidney [Unknown]
  - Product availability issue [Unknown]
  - Constipation [Unknown]
  - Malignant neoplasm progression [Unknown]
  - Malaise [Unknown]
  - Metastases to liver [Unknown]
  - Abdominal pain upper [Unknown]
  - Gastritis [Unknown]

NARRATIVE: CASE EVENT DATE: 202105
